FAERS Safety Report 7795762-X (Version None)
Quarter: 2011Q4

REPORT INFORMATION
  Report Type: 
  Country: None (occurrence: None)
  Receive Date: 20111004
  Receipt Date: 20110921
  Transmission Date: 20120403
  Serious: Yes (Other)
  Sender: FDA-Public Use
  Company Number: DE-JNJFOC-20111000672

PATIENT
  Sex: Male
  Weight: 100 kg

DRUGS (2)
  1. IBUPROFEN [Interacting]
     Indication: PRODUCT USED FOR UNKNOWN INDICATION
     Route: 065
  2. CELEBREX [Suspect]
     Indication: PAIN
     Route: 048
     Dates: start: 20110204, end: 20110212

REACTIONS (5)
  - FATIGUE [None]
  - DRUG INTERACTION [None]
  - CONFUSIONAL STATE [None]
  - DISORIENTATION [None]
  - DIZZINESS [None]
